FAERS Safety Report 23913210 (Version 1)
Quarter: 2024Q2

REPORT INFORMATION
  Report Type: Spontaneous
  Country: NL (occurrence: NL)
  Receive Date: 20240529
  Receipt Date: 20240529
  Transmission Date: 20240716
  Serious: Yes (Other)
  Sender: FDA-Public Use
  Company Number: None

PATIENT

DRUGS (3)
  1. BETULA PENDULA POLLEN [Suspect]
     Active Substance: BETULA PENDULA POLLEN
     Indication: Immune tolerance induction
     Dosage: 1 X PER DAG
     Dates: start: 20230714, end: 20240326
  2. GRAZAX [Suspect]
     Active Substance: PHLEUM PRATENSE POLLEN
     Indication: Immune tolerance induction
     Dosage: 1 X PER DAG
     Dates: start: 20230915, end: 20240226
  3. ACARIZAX [Suspect]
     Active Substance: DERMATOPHAGOIDES FARINAE\DERMATOPHAGOIDES PTERONYSSINUS
     Indication: Immune tolerance induction
     Dosage: 1 X PER DAG
     Dates: start: 20230614, end: 20240326

REACTIONS (1)
  - Sialoadenitis [Not Recovered/Not Resolved]
